FAERS Safety Report 19839658 (Version 1)
Quarter: 2021Q3

REPORT INFORMATION
  Report Type: Spontaneous
  Country: US (occurrence: US)
  Receive Date: 20210914
  Receipt Date: 20210914
  Transmission Date: 20211014
  Serious: No
  Sender: FDA-Public Use
  Company Number: None

PATIENT
  Age: 66 Year
  Sex: Male
  Weight: 119.84 kg

DRUGS (1)
  1. CHLORHEXIDINE GLUCONATE (CHLORHEXIDINE GLUCONATE 2% SURGICAL SCRUB) [Suspect]
     Active Substance: CHLORHEXIDINE GLUCONATE
     Indication: SURGERY
     Dates: start: 20180730, end: 20180730

REACTIONS (9)
  - Hypoaesthesia [None]
  - Allergy to chemicals [None]
  - Swelling [None]
  - Urticaria [None]
  - Paraesthesia [None]
  - Hypersensitivity [None]
  - Vomiting [None]
  - Nausea [None]
  - Pruritus [None]

NARRATIVE: CASE EVENT DATE: 20180730
